FAERS Safety Report 7305247-2 (Version None)
Quarter: 2011Q1

REPORT INFORMATION
  Report Type: 
  Country: None (occurrence: None)
  Receive Date: 20110222
  Receipt Date: 20110207
  Transmission Date: 20110831
  Serious: Yes (Death, Hospitalization)
  Sender: FDA-Public Use
  Company Number: IN-PFIZER INC-2010097648

PATIENT
  Age: 51 Year
  Sex: Female
  Weight: 49 kg

DRUGS (8)
  1. PREDNISOLONE [Suspect]
  2. FOLIC ACID [Concomitant]
     Indication: RHEUMATOID ARTHRITIS
     Dosage: 5 MG, 1X/DAY
     Route: 048
     Dates: start: 20090606
  3. METFORMIN [Concomitant]
     Indication: DIABETES MELLITUS
     Dosage: 1 TABLET
     Route: 048
     Dates: start: 20071023
  4. DICLOFENAC SODIUM [Suspect]
  5. NIMESULIDE [Concomitant]
     Indication: RHEUMATOID ARTHRITIS
     Dosage: 100 MG, 2X/DAY
     Route: 048
     Dates: start: 20090606
  6. CALCIUM [Concomitant]
     Indication: PROPHYLAXIS
     Dosage: 1 TABLET
     Route: 048
     Dates: start: 20090606
  7. PLACEBO [Suspect]
     Indication: RHEUMATOID ARTHRITIS
     Dosage: 2X/DAY
     Route: 048
     Dates: start: 20091218
  8. METHOTREXATE SODIUM [Suspect]
     Indication: RHEUMATOID ARTHRITIS
     Dosage: 15 MG, WEEKLY
     Dates: start: 20090606

REACTIONS (7)
  - RENAL FAILURE ACUTE [None]
  - HYDRONEPHROSIS [None]
  - URAEMIC ENCEPHALOPATHY [None]
  - BACTERIAL SEPSIS [None]
  - CARDIAC ARREST [None]
  - DIABETIC NEPHROPATHY [None]
  - PYELONEPHRITIS [None]
